FAERS Safety Report 6236994-1 (Version None)
Quarter: 2009Q2

REPORT INFORMATION
  Report Type: 
  Country: None (occurrence: None)
  Receive Date: 20090619
  Receipt Date: 20090312
  Transmission Date: 20091009
  Serious: No
  Sender: FDA-Public Use
  Company Number: US-ASTRAZENECA-2009UW06580

PATIENT
  Age: 67 Year
  Sex: Female
  Weight: 80.7 kg

DRUGS (4)
  1. SYMBICORT [Suspect]
     Indication: ASTHMA
     Route: 055
     Dates: start: 20080901, end: 20090101
  2. ALBUTEROL [Concomitant]
  3. ATROVENT [Concomitant]
  4. METOPROLOL SUCCINATE [Concomitant]

REACTIONS (5)
  - APHONIA [None]
  - BRONCHITIS [None]
  - HERPES ZOSTER [None]
  - PNEUMONIA [None]
  - SINUSITIS [None]
